FAERS Safety Report 6479958-5 (Version None)
Quarter: 2009Q4

REPORT INFORMATION
  Report Type: 
  Country: None (occurrence: None)
  Receive Date: 20091208
  Receipt Date: 20091118
  Transmission Date: 20100525
  Serious: Yes (Death)
  Sender: FDA-Public Use
  Company Number: US-SANOFI-AVENTIS-2009SA003772

PATIENT
  Age: 86 Year
  Sex: Female
  Weight: 36 kg

DRUGS (9)
  1. PLAVIX [Suspect]
     Route: 048
     Dates: start: 20080101, end: 20080526
  2. AVELOX [Suspect]
     Dates: end: 20080526
  3. ARICEPT [Concomitant]
     Route: 048
     Dates: start: 20080101
  4. MINITRAN [Concomitant]
     Dosage: 0.2 MG DAILY TOPICALLY APPLY 6 AM AND REMOVE 6 PM
     Dates: start: 20080101
  5. METOPROLOL [Concomitant]
     Route: 048
  6. PRILOSEC [Concomitant]
     Route: 048
  7. OSCAL [Concomitant]
     Route: 048
  8. TYLENOL (CAPLET) [Concomitant]
  9. PREVPAC [Concomitant]

REACTIONS (1)
  - CHOKING [None]
